FAERS Safety Report 7721029-1 (Version None)
Quarter: 2011Q3

REPORT INFORMATION
  Report Type: 
  Country: None (occurrence: None)
  Receive Date: 20110830
  Receipt Date: 20110830
  Transmission Date: 20111222
  Serious: Yes (Life-Threatening, Hospitalization, Disabling)
  Sender: FDA-Public Use
  Company Number: None

PATIENT
  Sex: Female
  Weight: 56.6996 kg

DRUGS (4)
  1. ABILIFY [Suspect]
     Indication: DEPRESSION
     Dosage: 10MG ONCE IN AM; 20MG ONCE IN PM
     Dates: start: 20100901
  2. ABILIFY [Suspect]
     Indication: BIPOLAR DISORDER
     Dosage: 10MG ONCE IN AM; 20MG ONCE IN PM
     Dates: start: 20100901
  3. ABILIFY [Suspect]
     Indication: DEPRESSION
     Dosage: 10MG ONCE IN AM; 20MG ONCE IN PM
     Dates: start: 20090301
  4. ABILIFY [Suspect]
     Indication: BIPOLAR DISORDER
     Dosage: 10MG ONCE IN AM; 20MG ONCE IN PM
     Dates: start: 20090301

REACTIONS (1)
  - NEUROLEPTIC MALIGNANT SYNDROME [None]
